FAERS Safety Report 8428154-0 (Version None)
Quarter: 2012Q2

REPORT INFORMATION
  Report Type: 
  Country: None (occurrence: None)
  Receive Date: 20120611
  Receipt Date: 20120605
  Transmission Date: 20120825
  Serious: Yes (Other)
  Sender: FDA-Public Use
  Company Number: US-ASTRAZENECA-2012SE37745

PATIENT
  Age: 67 Year
  Sex: Female
  Weight: 58.1 kg

DRUGS (3)
  1. BENADRYL [Concomitant]
  2. ASPIRIN [Concomitant]
  3. ARIMIDEX [Suspect]
     Indication: BREAST CANCER
     Route: 048
     Dates: start: 20080301

REACTIONS (12)
  - URTICARIA [None]
  - INSOMNIA [None]
  - NECK PAIN [None]
  - HOT FLUSH [None]
  - RECURRENT CANCER [None]
  - PRURITUS [None]
  - ASTHENIA [None]
  - OEDEMA PERIPHERAL [None]
  - ARTHRALGIA [None]
  - DEPRESSION [None]
  - OROPHARYNGEAL PAIN [None]
  - MUSCULOSKELETAL PAIN [None]
